FAERS Safety Report 6427128-9 (Version None)
Quarter: 2009Q4

REPORT INFORMATION
  Report Type: 
  Country: None (occurrence: None)
  Receive Date: 20091104
  Receipt Date: 20091028
  Transmission Date: 20100525
  Serious: Yes (Other)
  Sender: FDA-Public Use
  Company Number: IT-SANOFI-SYNTHELABO-A06200900550

PATIENT
  Sex: Male

DRUGS (3)
  1. XELODA [Concomitant]
     Indication: RECTAL CANCER STAGE IV
     Route: 048
     Dates: start: 20090609, end: 20090609
  2. AVASTIN [Concomitant]
     Indication: RECTAL CANCER STAGE IV
     Route: 042
  3. ELOXATIN [Suspect]
     Indication: RECTAL CANCER STAGE IV
     Route: 041
     Dates: start: 20090609, end: 20090609

REACTIONS (1)
  - LARYNGOSPASM [None]
